FAERS Safety Report 7021938-5 (Version None)
Quarter: 2010Q3

REPORT INFORMATION
  Report Type: 
  Country: None (occurrence: None)
  Receive Date: 20100930
  Receipt Date: 20100920
  Transmission Date: 20110219
  Serious: Yes (Other)
  Sender: FDA-Public Use
  Company Number: US-BAYER-201028929NA

PATIENT
  Sex: Female

DRUGS (2)
  1. MIRENA [Suspect]
     Indication: PRODUCT USED FOR UNKNOWN INDICATION
     Dosage: FREQUENCY: CONTINUOUS. THE PRODUCT WAS INSERTED 6 WEEKS POSTPARTUM
     Route: 015
     Dates: start: 20091201, end: 20100706
  2. MIRENA [Suspect]
     Dosage: FREQUENCY: CONTINUOUS.
     Route: 015
     Dates: start: 20090706

REACTIONS (6)
  - BREAST PAIN [None]
  - CHILLS [None]
  - DEVICE DISLOCATION [None]
  - NAUSEA [None]
  - PREGNANCY WITH CONTRACEPTIVE DEVICE [None]
  - PYREXIA [None]
